FAERS Safety Report 7059416-X (Version None)
Quarter: 2010Q4

REPORT INFORMATION
  Report Type: 
  Country: None (occurrence: None)
  Receive Date: 20101025
  Receipt Date: 20101014
  Transmission Date: 20110411
  Serious: Yes (Other)
  Sender: FDA-Public Use
  Company Number: US-BAYER-201031443NA

PATIENT
  Age: 43 Year
  Sex: Female

DRUGS (2)
  1. BETASERON [Suspect]
     Indication: MULTIPLE SCLEROSIS
     Dosage: TOTAL DAILY DOSE: 8 MIU
     Route: 058
     Dates: start: 20081103, end: 20100821
  2. LAMICTAL [Concomitant]
     Indication: CONVULSION

REACTIONS (10)
  - BODY TEMPERATURE INCREASED [None]
  - BRUXISM [None]
  - FEELING HOT [None]
  - GAIT DISTURBANCE [None]
  - INFLUENZA LIKE ILLNESS [None]
  - INSOMNIA [None]
  - MUSCLE TIGHTNESS [None]
  - MUSCULOSKELETAL STIFFNESS [None]
  - TREMOR [None]
  - TRISMUS [None]
